FAERS Safety Report 15271385 (Version 1)
Quarter: 2018Q3

REPORT INFORMATION
  Report Type: Spontaneous
  Country: US (occurrence: US)
  Receive Date: 20180727
  Receipt Date: 20180727
  Transmission Date: 20181010
  Serious: Yes (Hospitalization, Other)
  Sender: FDA-Public Use
  Company Number: None

PATIENT
  Age: 51 Year

DRUGS (1)
  1. VALSARTAN AND HYDROCHLOROTHIAZIDE [Suspect]
     Active Substance: HYDROCHLOROTHIAZIDE\VALSARTAN
     Indication: HYPERTENSION
     Dates: start: 20180708, end: 20180723

REACTIONS (4)
  - Blood potassium decreased [None]
  - Anxiety [None]
  - Dizziness [None]
  - Flank pain [None]

NARRATIVE: CASE EVENT DATE: 20180713
